FAERS Safety Report 5741339-7 (Version None)
Quarter: 2008Q2

REPORT INFORMATION
  Report Type: 
  Country: None (occurrence: None)
  Receive Date: 20080514
  Receipt Date: 20080505
  Transmission Date: 20081010
  Serious: Yes (Life-Threatening, Hospitalization)
  Sender: FDA-Public Use
  Company Number: FABR-1000235

PATIENT
  Age: 49 Year
  Sex: Male
  Weight: 61 kg

DRUGS (5)
  1. FABRAZYME [Suspect]
     Indication: FABRY'S DISEASE
     Dosage: 1 MG/KG, INTRAVENOUS
     Route: 042
     Dates: start: 20060516
  2. CALCIUM CARBONATE (CALCIUM CARBONATE) [Concomitant]
  3. B-COMPLEX (VITAMIN B NOS) [Concomitant]
  4. FOLIC ACID [Concomitant]
  5. CALCITRIOL [Concomitant]

REACTIONS (2)
  - ATRIAL FIBRILLATION [None]
  - CHEST PAIN [None]
